FAERS Safety Report 6775238-9 (Version None)
Quarter: 2010Q2

REPORT INFORMATION
  Report Type: 
  Country: None (occurrence: None)
  Receive Date: 20100617
  Receipt Date: 20100610
  Transmission Date: 20101027
  Serious: Yes (Other)
  Sender: FDA-Public Use
  Company Number: NZ-JNJFOC-20100603574

PATIENT
  Age: 46 Year
  Sex: Female

DRUGS (1)
  1. RISPERDAL CONSTA [Suspect]
     Indication: DRUG USE FOR UNKNOWN INDICATION
     Route: 065

REACTIONS (4)
  - INCORRECT DOSE ADMINISTERED [None]
  - OVERDOSE [None]
  - PARANOIA [None]
  - SELF-INJURIOUS IDEATION [None]
